FAERS Safety Report 9511373 (Version 3)
Quarter: 2014Q1

REPORT INFORMATION
  Report Type: Spontaneous
  Country: FR (occurrence: FR)
  Receive Date: 20130910
  Receipt Date: 20140219
  Transmission Date: 20141002
  Serious: Yes (Hospitalization)
  Sender: FDA-Public Use
  Company Number: FR-JNJFOC-20130815674

PATIENT
  Age: 28 Year
  Sex: Female

DRUGS (13)
  1. XEPLION [Suspect]
     Indication: ACUTE PSYCHOSIS
     Route: 030
     Dates: start: 20130823
  2. RISPERDAL [Suspect]
     Indication: PRODUCT USED FOR UNKNOWN INDICATION
     Dosage: 4DAYS
     Route: 048
  3. RISPERDAL [Suspect]
     Indication: PRODUCT USED FOR UNKNOWN INDICATION
     Dosage: 4 DAYS
     Route: 048
  4. RISPERDAL [Suspect]
     Indication: PRODUCT USED FOR UNKNOWN INDICATION
     Route: 048
     Dates: end: 20130823
  5. DEPAKINE [Concomitant]
     Route: 065
  6. LEDERFOLINE [Concomitant]
     Route: 065
  7. LEPTICUR [Concomitant]
     Route: 065
  8. SULFARLEM [Concomitant]
     Route: 065
  9. VALIUM [Concomitant]
     Route: 065
  10. DAFALGAN [Concomitant]
     Route: 065
  11. IMOVANE [Concomitant]
     Route: 065
  12. LOXAPAC [Concomitant]
     Route: 065
  13. THERALENE [Concomitant]
     Route: 065

REACTIONS (10)
  - Chest pain [Recovered/Resolved]
  - Acute respiratory failure [Recovered/Resolved]
  - Anxiety [Recovered/Resolved]
  - Hypotension [Recovered/Resolved]
  - Rales [Recovered/Resolved]
  - Nausea [Recovered/Resolved]
  - Vomiting [Recovered/Resolved]
  - Dyspnoea [Recovered/Resolved]
  - Tachycardia [Recovered/Resolved]
  - Headache [Unknown]
